FAERS Safety Report 5644771-5 (Version None)
Quarter: 2008Q1

REPORT INFORMATION
  Report Type: 
  Country: None (occurrence: None)
  Receive Date: 20080229
  Receipt Date: 20080215
  Transmission Date: 20080703
  Serious: Yes (Hospitalization)
  Sender: FDA-Public Use
  Company Number: GB-RANBAXY-2005RR-00439

PATIENT

DRUGS (3)
  1. IBUPROFEN [Suspect]
     Indication: PYREXIA
     Dosage: 5 MG/KG, UNK
     Route: 048
  2. ACETAMINOPHEN [Suspect]
     Indication: PYREXIA
     Dosage: 15 MG/KG, UNK
     Route: 048
  3. CEFUROXIME [Concomitant]
     Indication: PNEUMONIA
     Route: 042

REACTIONS (2)
  - DRUG INTERACTION [None]
  - HYPOTHERMIA [None]
